FAERS Safety Report 9282298 (Version 1)
Quarter: 2013Q2

REPORT INFORMATION
  Report Type: Spontaneous
  Country: US (occurrence: US)
  Receive Date: 20130510
  Receipt Date: 20130510
  Transmission Date: 20140414
  Serious: Yes (Other)
  Sender: FDA-Public Use
  Company Number: US-PFIZER INC-2013144427

PATIENT
  Sex: Female

DRUGS (3)
  1. ALPRAZOLAM [Suspect]
     Indication: DEPRESSION
     Dosage: UNK
  2. ALPRAZOLAM [Suspect]
     Indication: ANXIETY
  3. ALPRAZOLAM [Suspect]
     Indication: PANIC DISORDER

REACTIONS (1)
  - Hallucination [Unknown]
